FAERS Safety Report 16153515 (Version 1)
Quarter: 2019Q2

REPORT INFORMATION
  Report Type: Spontaneous
  Country: KR (occurrence: KR)
  Receive Date: 20190403
  Receipt Date: 20190403
  Transmission Date: 20190711
  Serious: Yes (Other)
  Sender: FDA-Public Use
  Company Number: KR-009507513-1904KOR001382

PATIENT
  Age: 36 Year
  Sex: Female

DRUGS (1)
  1. DESOGESTREL 150MCG (+) ETHINYL ESTRADIOL 20MCG [Suspect]
     Active Substance: DESOGESTREL\ETHINYL ESTRADIOL
     Indication: CONTRACEPTION
     Dosage: UNK
     Route: 048

REACTIONS (1)
  - Meningioma [Unknown]
